FAERS Safety Report 11939011 (Version 1)
Quarter: 2016Q1

REPORT INFORMATION
  Report Type: Spontaneous
  Country: DE (occurrence: DE)
  Receive Date: 20160122
  Receipt Date: 20160122
  Transmission Date: 20160526
  Serious: Yes (Death, Hospitalization, Other)
  Sender: FDA-Public Use
  Company Number: DE-009507513-1601DEU004283

PATIENT
  Age: 57 Year
  Sex: Female

DRUGS (1)
  1. TEMODAL [Suspect]
     Active Substance: TEMOZOLOMIDE
     Indication: GLIOBLASTOMA
     Dosage: 100 MG, QM
     Route: 048
     Dates: start: 20151015, end: 20151102

REACTIONS (6)
  - Thrombocytopenia [Recovered/Resolved]
  - Neutropenia [Recovered/Resolved]
  - Incorrect drug administration duration [Unknown]
  - Anaemia [Recovered/Resolved]
  - Glioblastoma [Fatal]
  - Partial seizures [Recovered/Resolved]

NARRATIVE: CASE EVENT DATE: 20151020
